FAERS Safety Report 9719224 (Version 2)
Quarter: 2014Q1

REPORT INFORMATION
  Report Type: Spontaneous
  Country: DE (occurrence: DE)
  Receive Date: 20131127
  Receipt Date: 20140113
  Transmission Date: 20141002
  Serious: Yes (Other)
  Sender: FDA-Public Use
  Company Number: PHHY2013DE136036

PATIENT
  Sex: Female

DRUGS (2)
  1. ZOMETA [Suspect]
     Indication: SYSTEMIC MASTOCYTOSIS
     Dosage: UNK (FOR EVERY 4 WEEKS)
  2. ZOMETA [Suspect]
     Indication: OFF LABEL USE

REACTIONS (2)
  - Metastases to lymph nodes [Unknown]
  - Breast cancer [Unknown]
